FAERS Safety Report 14992592 (Version 2)
Quarter: 2018Q2

REPORT INFORMATION
  Report Type: Report from Study
  Country: EG (occurrence: EG)
  Receive Date: 20180609
  Receipt Date: 20180615
  Transmission Date: 20180711
  Serious: Yes (Hospitalization)
  Sender: FDA-Public Use
  Company Number: EG-ROCHE-2134857

PATIENT
  Age: 40 Year
  Sex: Male

DRUGS (3)
  1. ANTODINE (FAMOTIDINE) [Concomitant]
     Indication: ABDOMINAL DISCOMFORT
     Route: 048
     Dates: start: 20180403, end: 20180411
  2. PARACETAMOL [Concomitant]
     Active Substance: ACETAMINOPHEN
     Indication: HEADACHE
     Route: 048
     Dates: start: 20180413
  3. PIRFENIDONE. [Suspect]
     Active Substance: PIRFENIDONE
     Indication: IDIOPATHIC PULMONARY FIBROSIS
     Dosage: DATE OF MOST RECENT DOSE (2403 MG) OF PIRFENIDONE PRIOR TO AE ONSET WAS 13/MAY/2018 ?PIRFENIDONE WIL
     Route: 048
     Dates: start: 20180402

REACTIONS (1)
  - Hypoxia [Not Recovered/Not Resolved]

NARRATIVE: CASE EVENT DATE: 20180513
